FAERS Safety Report 12141173 (Version 4)
Quarter: 2016Q2

REPORT INFORMATION
  Report Type: Spontaneous
  Country: US (occurrence: US)
  Receive Date: 20160303
  Receipt Date: 20160503
  Transmission Date: 20160815
  Serious: Yes (Hospitalization, Other)
  Sender: FDA-Public Use
  Company Number: US-PFIZER INC-2016096145

PATIENT
  Age: 57 Year
  Sex: Female
  Weight: 74 kg

DRUGS (3)
  1. CHANTIX [Concomitant]
     Active Substance: VARENICLINE TARTRATE
     Indication: SMOKING CESSATION THERAPY
     Dosage: UNK
     Dates: end: 201506
  2. AMLODIPINE BESILATE [Suspect]
     Active Substance: AMLODIPINE BESYLATE
     Indication: BLOOD PRESSURE ABNORMAL
     Dosage: 5 MG, UNK
  3. AMLODIPINE BESILATE [Suspect]
     Active Substance: AMLODIPINE BESYLATE
     Indication: HYPERTENSION
     Dosage: 2 MG, 1X/DAY

REACTIONS (6)
  - Deafness [Unknown]
  - Drug ineffective [Unknown]
  - Dizziness [Not Recovered/Not Resolved]
  - Pneumonia [Recovered/Resolved]
  - Cerebrovascular accident [Unknown]
  - Hypotension [Not Recovered/Not Resolved]
